FAERS Safety Report 5208673-0 (Version None)
Quarter: 2007Q1

REPORT INFORMATION
  Report Type: 
  Country: None (occurrence: None)
  Receive Date: 20070116
  Receipt Date: 20070108
  Transmission Date: 20070707
  Serious: Yes (Disabling)
  Sender: FDA-Public Use
  Company Number: PHBS2007TR00817

PATIENT
  Age: 51 Year
  Sex: Female
  Weight: 80 kg

DRUGS (2)
  1. ZOMETA [Suspect]
     Dosage: 4 MG, ONCE A MONTH
     Route: 042
  2. FEMARA [Concomitant]
     Dosage: UNK, QD
     Route: 048

REACTIONS (2)
  - BONE LESION [None]
  - OSTEONECROSIS [None]
